FAERS Safety Report 7038504-8 (Version None)
Quarter: 2010Q4

REPORT INFORMATION
  Report Type: 
  Country: None (occurrence: None)
  Receive Date: 20101011
  Receipt Date: 20100521
  Transmission Date: 20110411
  Serious: Yes (Other)
  Sender: FDA-Public Use
  Company Number: US-PFIZER INC-2010045019

PATIENT
  Sex: Female
  Weight: 48.9 kg

DRUGS (15)
  1. GABAPENTIN [Suspect]
     Indication: NEUROPATHY PERIPHERAL
     Dosage: 300 MG, 1X/DAY
     Route: 048
     Dates: start: 20100401
  2. GABAPENTIN [Suspect]
     Dosage: 300 MG, 1X/DAY
     Dates: start: 20090317, end: 20100401
  3. AMLODIPINE [Concomitant]
     Indication: HYPERTENSION
     Dosage: 2.5 MG, 1X/DAY
     Route: 048
  4. LISINOPRIL [Concomitant]
     Indication: HYPERTENSION
     Dosage: 40 MG, 2X/DAY
     Route: 048
  5. FUROSEMIDE [Concomitant]
     Indication: DIURETIC THERAPY
     Dosage: 40MG IN AM THAN 20 MG IN PM; TWICE DAILY
     Route: 048
  6. HUMALOG [Concomitant]
     Indication: DIABETES MELLITUS
     Dosage: SLIDING SCALE
     Route: 058
  7. LIPITOR [Concomitant]
     Indication: BLOOD CHOLESTEROL INCREASED
     Dosage: 80 MG, 1X/DAY
     Route: 048
  8. EVISTA [Concomitant]
     Indication: HORMONE THERAPY
     Dosage: 60 MG, 1X/DAY
     Route: 048
  9. ISOSORBIDE DINITRATE [Concomitant]
     Indication: ANGINA PECTORIS
     Dosage: 40 MG, 3X/DAY
     Route: 048
  10. PLAVIX [Concomitant]
     Indication: TRANSIENT ISCHAEMIC ATTACK
     Dosage: 75 MG, 1X/DAY
     Route: 048
  11. NPH INSULIN [Concomitant]
     Indication: DIABETES MELLITUS
     Dosage: 7 IU IN AM, 6 IU IN PM; 2X/DAY
     Route: 058
  12. VITAMIN B-12 [Concomitant]
     Dosage: 1 MG, 1X/DAY
     Route: 048
  13. CALCIUM [Concomitant]
     Dosage: 500 MG, 2X/DAY
     Route: 048
  14. FISH OIL [Concomitant]
     Dosage: UNK; TWICE DAILY
     Route: 048
  15. ACETYLSALICYLIC ACID [Concomitant]
     Dosage: 81 MG, 1X/DAY

REACTIONS (4)
  - DRUG INEFFECTIVE [None]
  - NEURALGIA [None]
  - NEUROPATHY PERIPHERAL [None]
  - PAIN [None]
